FAERS Safety Report 11201050 (Version 2)
Quarter: 2015Q4

REPORT INFORMATION
  Report Type: Spontaneous
  Country: BE (occurrence: BE)
  Receive Date: 20150619
  Receipt Date: 20151008
  Transmission Date: 20160304
  Serious: Yes (Other)
  Sender: FDA-Public Use
  Company Number: BE-ABBVIE-15K-013-1409062-00

PATIENT
  Age: 45 Year
  Sex: Male
  Weight: 75 kg

DRUGS (1)
  1. HUMIRA [Suspect]
     Active Substance: ADALIMUMAB
     Indication: PSORIASIS
     Route: 058
     Dates: start: 20120109

REACTIONS (3)
  - Deafness neurosensory [Recovered/Resolved]
  - Deafness [Recovered/Resolved]
  - Middle ear disorder [Unknown]

NARRATIVE: CASE EVENT DATE: 20150520
